APPROVED DRUG PRODUCT: PROMETHAZINE HYDROCHLORIDE
Active Ingredient: PROMETHAZINE HYDROCHLORIDE
Strength: 50MG
Dosage Form/Route: TABLET;ORAL
Application: A091054 | Product #003
Applicant: AUROBINDO PHARMA USA INC
Approved: Aug 30, 2011 | RLD: No | RS: No | Type: DISCN